FAERS Safety Report 5302594-0 (Version None)
Quarter: 2007Q2

REPORT INFORMATION
  Report Type: 
  Country: None (occurrence: None)
  Receive Date: 20070419
  Receipt Date: 20070411
  Transmission Date: 20071010
  Serious: Yes (Hospitalization)
  Sender: FDA-Public Use
  Company Number: DE-BOEHRINGER INGELHEIM PHARMACEUTICALS, INC.-2007-DE-02096DE

PATIENT
  Sex: Female
  Weight: 60 kg

DRUGS (6)
  1. ATROVENT [Suspect]
     Route: 048
  2. ASPIRIN [Suspect]
     Route: 048
  3. BRONCHORETARD 350 [Suspect]
     Route: 048
  4. PREDNISOLON 50 [Suspect]
     Route: 048
  5. SALBUTAMOL [Suspect]
     Route: 048
  6. VIANI [Suspect]
     Route: 048

REACTIONS (4)
  - MEDICATION ERROR [None]
  - OVERDOSE [None]
  - SOMNOLENCE [None]
  - TACHYCARDIA [None]
